FAERS Safety Report 5319947-7 (Version None)
Quarter: 2007Q2

REPORT INFORMATION
  Report Type: 
  Country: None (occurrence: None)
  Receive Date: 20070509
  Receipt Date: 20070430
  Transmission Date: 20071010
  Serious: Yes (Death, Hospitalization)
  Sender: FDA-Public Use
  Company Number: HQWYE897930APR07

PATIENT
  Age: 92 Year
  Sex: Male

DRUGS (5)
  1. INIPOMP [Suspect]
     Route: 048
     Dates: end: 20060802
  2. SERESTA [Suspect]
     Route: 048
     Dates: end: 20060727
  3. MORPHINE [Concomitant]
     Dosage: UNKNOWN
  4. NORSET [Suspect]
     Route: 048
     Dates: end: 20060802
  5. DI-ANTALVIC [Suspect]
     Route: 048
     Dates: end: 20060727

REACTIONS (5)
  - CONDITION AGGRAVATED [None]
  - DEHYDRATION [None]
  - FALL [None]
  - GENERAL PHYSICAL HEALTH DETERIORATION [None]
  - RENAL FAILURE [None]
